FAERS Safety Report 6150849-2 (Version None)
Quarter: 2009Q2

REPORT INFORMATION
  Report Type: 
  Country: None (occurrence: None)
  Receive Date: 20090409
  Receipt Date: 20090402
  Transmission Date: 20091009
  Serious: Yes (Hospitalization)
  Sender: FDA-Public Use
  Company Number: US-GILEAD-2009-0021276

PATIENT
  Sex: Male
  Weight: 104.42 kg

DRUGS (16)
  1. LETAIRIS [Suspect]
     Indication: PULMONARY ARTERIAL HYPERTENSION
     Route: 048
     Dates: start: 20090319
  2. METOPROLOL TARTRATE [Concomitant]
  3. SIMVASTATIN [Concomitant]
  4. ASPIRIN [Concomitant]
  5. FUROSEMIDE [Concomitant]
  6. VIAGRA [Concomitant]
  7. OXYGEN [Concomitant]
  8. HUMULIN R [Concomitant]
  9. TRAZODONE HCL [Concomitant]
  10. CYCLOBENZAPRINE [Concomitant]
  11. FLUOXETINE [Concomitant]
  12. HYDROCODONE BITARTRATE AND ACETAMINOPHEN [Concomitant]
  13. ACETA W/ CODEINE 300/30 [Concomitant]
  14. FLOMAX [Concomitant]
  15. SIMETHICONE [Concomitant]
  16. SALSALATE [Concomitant]

REACTIONS (1)
  - PULMONARY ARTERIAL HYPERTENSION [None]
